FAERS Safety Report 4340535-3 (Version None)
Quarter: 2004Q2

REPORT INFORMATION
  Report Type: 
  Country: None (occurrence: None)
  Receive Date: 20040414
  Receipt Date: 20040405
  Transmission Date: 20050107
  Serious: Yes (Life-Threatening)
  Sender: FDA-Public Use
  Company Number: 04P-083-0256040-00

PATIENT
  Age: 59 Year
  Sex: Female

DRUGS (2)
  1. BIAXIN [Suspect]
     Indication: WOUND INFECTION
     Dosage: 500 MG, 2 IN 1 D, PER ORAL
     Route: 048
     Dates: start: 20040210, end: 20040214
  2. ZITHROMAX [Suspect]
     Indication: WOUND INFECTION
     Dosage: 500 MG, 1 IN 1 D, PER ORAL
     Route: 048
     Dates: start: 20040214, end: 20040216

REACTIONS (1)
  - AGRANULOCYTOSIS [None]
